FAERS Safety Report 14825436 (Version 3)
Quarter: 2018Q2

REPORT INFORMATION
  Report Type: Spontaneous
  Country: US (occurrence: US)
  Receive Date: 20180430
  Receipt Date: 20180612
  Transmission Date: 20180711
  Serious: No
  Sender: FDA-Public Use
  Company Number: US-CELGENEUS-USA-20180409250

PATIENT
  Age: 53 Year
  Sex: Female

DRUGS (5)
  1. OTEZLA [Suspect]
     Active Substance: APREMILAST
     Indication: PSORIASIS
     Dosage: 30 MILLIGRAM
     Route: 048
     Dates: start: 201804
  2. OTEZLA [Suspect]
     Active Substance: APREMILAST
     Dosage: 60 MILLIGRAM
     Route: 048
     Dates: start: 201804, end: 20180424
  3. OTEZLA [Suspect]
     Active Substance: APREMILAST
     Indication: PSORIATIC ARTHROPATHY
     Dosage: 10 MILLIGRAM
     Route: 048
     Dates: start: 20180420
  4. VITAMINS [Concomitant]
     Active Substance: VITAMINS
     Indication: PRODUCT USED FOR UNKNOWN INDICATION
     Route: 065
  5. PENLAC LACQUER [Concomitant]
     Indication: ONYCHOMYCOSIS
     Route: 065
     Dates: start: 20180420

REACTIONS (3)
  - Hyperacusis [Unknown]
  - Pupillary disorder [Unknown]
  - Head discomfort [Unknown]

NARRATIVE: CASE EVENT DATE: 20180422
